FAERS Safety Report 15493633 (Version 1)
Quarter: 2018Q4

REPORT INFORMATION
  Report Type: Spontaneous
  Country: US (occurrence: US)
  Receive Date: 20181004
  Receipt Date: 20181004
  Transmission Date: 20190205
  Serious: Yes (Hospitalization, Disabling)
  Sender: FDA-Public Use
  Company Number: None

PATIENT
  Age: 34 Year
  Sex: Female
  Weight: 72.57 kg

DRUGS (4)
  1. GADOLINIUM MRI CONTRAST [Suspect]
     Active Substance: GADOLINIUM
     Indication: SCAN WITH CONTRAST
     Dates: start: 20180418, end: 20180701
  2. MORPHINE [Concomitant]
     Active Substance: MORPHINE
  3. KEPPRA [Concomitant]
     Active Substance: LEVETIRACETAM
  4. CYMBALTA [Concomitant]
     Active Substance: DULOXETINE HYDROCHLORIDE

REACTIONS (18)
  - Seizure [None]
  - Hepatic enzyme increased [None]
  - Communication disorder [None]
  - Therapy non-responder [None]
  - Nausea [None]
  - Product complaint [None]
  - Fall [None]
  - Feeling abnormal [None]
  - Muscle spasms [None]
  - Pain [None]
  - Inadequate analgesia [None]
  - Fatigue [None]
  - Pain in extremity [None]
  - Photosensitivity reaction [None]
  - Burning sensation [None]
  - Headache [None]
  - Arthralgia [None]
  - Sensory disturbance [None]

NARRATIVE: CASE EVENT DATE: 20180503
